FAERS Safety Report 18108277 (Version 2)
Quarter: 2020Q4

REPORT INFORMATION
  Report Type: Spontaneous
  Country: US (occurrence: US)
  Receive Date: 20200803
  Receipt Date: 20201203
  Transmission Date: 20210113
  Serious: No
  Sender: FDA-Public Use
  Company Number: US-009507513-2007USA005745

PATIENT
  Age: 25 Year
  Sex: Female

DRUGS (1)
  1. ETONOGESTREL IMPLANT [Suspect]
     Active Substance: ETONOGESTREL
     Indication: CONTRACEPTION
     Dosage: 1 DOSAGE FORM
     Route: 058

REACTIONS (1)
  - Dermatitis contact [Unknown]
